FAERS Safety Report 7653868-X (Version None)
Quarter: 2011Q3

REPORT INFORMATION
  Report Type: 
  Country: None (occurrence: None)
  Receive Date: 20110803
  Receipt Date: 20110725
  Transmission Date: 20111222
  Serious: Yes (Hospitalization, Other)
  Sender: FDA-Public Use
  Company Number: US-ASTRAZENECA-2011SE44108

PATIENT
  Age: 70 Year
  Sex: Female

DRUGS (7)
  1. LORAZEPAM [Concomitant]
  2. LISINOPRIL [Concomitant]
     Indication: HYPERTENSION
     Route: 048
  3. ZEGERID OTC [Concomitant]
     Indication: GASTROOESOPHAGEAL REFLUX DISEASE
  4. SEROQUEL XR [Suspect]
     Indication: DEMENTIA ALZHEIMER'S TYPE
     Route: 048
     Dates: start: 20080101
  5. NAMENDA [Concomitant]
  6. EXELON [Concomitant]
  7. ASPIRIN [Concomitant]

REACTIONS (4)
  - PROSTATIC OPERATION [None]
  - AORTIC ANEURYSM REPAIR [None]
  - AORTIC ANEURYSM [None]
  - PROSTATE CANCER [None]
